FAERS Safety Report 13082505 (Version 1)
Quarter: 2017Q1

REPORT INFORMATION
  Report Type: Spontaneous
  Country: FR (occurrence: FR)
  Receive Date: 20170103
  Receipt Date: 20170103
  Transmission Date: 20170428
  Serious: Yes (Other)
  Sender: FDA-Public Use
  Company Number: FR-GILEAD-2016-0251293

PATIENT
  Age: 37 Year
  Sex: Male

DRUGS (2)
  1. HARVONI [Suspect]
     Active Substance: LEDIPASVIR\SOFOSBUVIR
     Indication: PRODUCT USED FOR UNKNOWN INDICATION
     Dosage: UNK
     Route: 065
     Dates: start: 2016
  2. METHADONE [Concomitant]
     Active Substance: METHADONE HYDROCHLORIDE

REACTIONS (6)
  - Tracheal pain [Unknown]
  - Fatigue [Unknown]
  - Haematemesis [Unknown]
  - Choking sensation [Unknown]
  - Rash [Unknown]
  - Irritability [Unknown]

NARRATIVE: CASE EVENT DATE: 2016
